FAERS Safety Report 4755369-5 (Version None)
Quarter: 2005Q3

REPORT INFORMATION
  Report Type: 
  Country: None (occurrence: None)
  Receive Date: 20050826
  Receipt Date: 20050215
  Transmission Date: 20060218
  Serious: Yes (Hospitalization, Other)
  Sender: FDA-Public Use
  Company Number: USA-2002-0000559

PATIENT
  Age: 50 Year
  Sex: Female
  Weight: 61.2 kg

DRUGS (21)
  1. OXYCONTIN [Suspect]
     Indication: PAIN
     Dosage: 0 MG, SEE TEXT, ORAL
     Route: 048
     Dates: start: 20000606
  2. OXYCONTIN [Suspect]
     Indication: PAIN
     Dosage: SEE TEXT
  3. OXYCONTIN [Suspect]
     Indication: PAIN
     Dosage: SEE TEXT
  4. OXYCONTIN [Suspect]
     Indication: PAIN
     Dosage: SEE TEXT
  5. NORCO [Concomitant]
  6. PROZAC [Concomitant]
  7. MAXZIDE [Concomitant]
  8. ATENOLOL [Concomitant]
  9. SULAR [Concomitant]
  10. PREMARIN [Concomitant]
  11. ALPRAZOLAM [Concomitant]
  12. CEFTIN [Concomitant]
  13. AUGMENTIN '125' [Concomitant]
  14. NASONEX [Concomitant]
  15. EFFEXOR [Concomitant]
  16. TRAZODONE [Concomitant]
  17. CATAPRES [Concomitant]
  18. PRILOSEC [Concomitant]
  19. HYDROCODONE [Concomitant]
  20. DURAGESIC-100 [Concomitant]
  21. CHLORZOXAZONE [Concomitant]

REACTIONS (10)
  - CONSTIPATION [None]
  - DRUG ABUSER [None]
  - DRUG DEPENDENCE [None]
  - DRUG INEFFECTIVE [None]
  - DRUG WITHDRAWAL SYNDROME [None]
  - EMOTIONAL DISTRESS [None]
  - PAIN [None]
  - SOMNOLENCE [None]
  - TREMOR [None]
  - VISUAL DISTURBANCE [None]
